FAERS Safety Report 5811812-1 (Version None)
Quarter: 2008Q3

REPORT INFORMATION
  Report Type: 
  Country: None (occurrence: None)
  Receive Date: 20080715
  Receipt Date: 20080715
  Transmission Date: 20090109
  Serious: Yes (Disabling, Other)
  Sender: FDA-Public Use
  Company Number: None

PATIENT
  Age: 47 Year
  Sex: Female
  Weight: 75 kg

DRUGS (1)
  1. MIRENA [Suspect]
     Indication: MENORRHAGIA
     Dates: start: 20040923, end: 20080529

REACTIONS (20)
  - ABDOMINAL DISTENSION [None]
  - ABDOMINAL PAIN UPPER [None]
  - ACNE [None]
  - ASTHENIA [None]
  - BREAST PAIN [None]
  - DEPRESSION [None]
  - DRY SKIN [None]
  - DYSMENORRHOEA [None]
  - GENITAL HAEMORRHAGE [None]
  - HEADACHE [None]
  - HYPERTRICHOSIS [None]
  - MALAISE [None]
  - MENORRHAGIA [None]
  - OVARIAN CYST [None]
  - PAIN [None]
  - PALPITATIONS [None]
  - SOCIAL AVOIDANT BEHAVIOUR [None]
  - THROMBOSIS [None]
  - THYROIDECTOMY [None]
  - WEIGHT INCREASED [None]
